FAERS Safety Report 7134932-0 (Version None)
Quarter: 2010Q4

REPORT INFORMATION
  Report Type: 
  Country: None (occurrence: None)
  Receive Date: 20101203
  Receipt Date: 20101125
  Transmission Date: 20110411
  Serious: Yes (Hospitalization, Other)
  Sender: FDA-Public Use
  Company Number: IT-JNJFOC-20101104306

PATIENT
  Sex: Female

DRUGS (6)
  1. REOPRO [Suspect]
     Indication: ACUTE CORONARY SYNDROME
     Route: 065
  2. REOPRO [Suspect]
     Route: 065
  3. ACETYL SALICYLIC ACID USP BAT [Suspect]
     Indication: ILL-DEFINED DISORDER
  4. ACETYL SALICYLIC ACID USP BAT [Suspect]
  5. CLOPIDOGREL [Suspect]
     Indication: ILL-DEFINED DISORDER
  6. HEPARIN [Concomitant]
     Indication: ILL-DEFINED DISORDER

REACTIONS (7)
  - CARDIAC ARREST [None]
  - HAEMATURIA [None]
  - PLEURAL FIBROSIS [None]
  - STAPHYLOCOCCAL SEPSIS [None]
  - STERNAL FRACTURE [None]
  - THROMBOCYTOPENIA [None]
  - VENTRICULAR HYPOKINESIA [None]
